FAERS Safety Report 5322819-5 (Version None)
Quarter: 2007Q2

REPORT INFORMATION
  Report Type: 
  Country: None (occurrence: None)
  Receive Date: 20070511
  Receipt Date: 20070430
  Transmission Date: 20071010
  Serious: Yes (Hospitalization, Other)
  Sender: FDA-Public Use
  Company Number: PFIZER INC-2007034526

PATIENT
  Age: 58 Year
  Sex: Female
  Weight: 69.28 kg

DRUGS (5)
  1. SUTENT [Suspect]
     Indication: LEIOMYOSARCOMA
     Route: 048
     Dates: start: 20070215, end: 20070226
  2. WARFARIN [Suspect]
  3. ATENOLOL [Concomitant]
  4. OXYCODONE HCL [Concomitant]
  5. PROMETHAZINE [Concomitant]

REACTIONS (3)
  - ABDOMINAL PAIN [None]
  - ASPARTATE AMINOTRANSFERASE INCREASED [None]
  - INTERNATIONAL NORMALISED RATIO INCREASED [None]
